FAERS Safety Report 7351001-5 (Version None)
Quarter: 2011Q1

REPORT INFORMATION
  Report Type: 
  Country: None (occurrence: None)
  Receive Date: 20110314
  Receipt Date: 20110301
  Transmission Date: 20110831
  Serious: Yes (Hospitalization)
  Sender: FDA-Public Use
  Company Number: PHHY2011IT17929

PATIENT

DRUGS (6)
  1. AMITRIPTYLINE HCL [Concomitant]
     Dosage: 20 MG, UNK
  2. LORAZEPAM [Concomitant]
     Dosage: UNK
  3. LORAZEPAM [Concomitant]
     Dosage: 1 MG, BID
  4. PROMAZINE [Concomitant]
     Dosage: 50 MG, UNK
     Route: 042
  5. CLARITHROMYCIN [Suspect]
     Indication: BRONCHITIS
     Dosage: 500 MG, BID
  6. CLOTIAPINE [Concomitant]
     Dosage: 40 MG, UNK
     Route: 042

REACTIONS (12)
  - LETHARGY [None]
  - PRESSURE OF SPEECH [None]
  - NEUROTOXICITY [None]
  - BLOOD CREATINE PHOSPHOKINASE INCREASED [None]
  - DYSPHORIA [None]
  - CENTRAL NERVOUS SYSTEM LESION [None]
  - STATUS EPILEPTICUS [None]
  - AGITATION [None]
  - ABNORMAL BEHAVIOUR [None]
  - ATROPHY [None]
  - LEUKOCYTOSIS [None]
  - PSYCHOMOTOR SKILLS IMPAIRED [None]
